FAERS Safety Report 16481035 (Version 2)
Quarter: 2019Q3

REPORT INFORMATION
  Report Type: Spontaneous
  Country: US (occurrence: US)
  Receive Date: 20190626
  Receipt Date: 20190803
  Transmission Date: 20191004
  Serious: No
  Sender: FDA-Public Use
  Company Number: PHEH2019US026085

PATIENT
  Sex: Female

DRUGS (1)
  1. CYCLOPENTOLATE HCL [Suspect]
     Active Substance: CYCLOPENTOLATE HYDROCHLORIDE
     Indication: PRODUCT USED FOR UNKNOWN INDICATION
     Route: 065

REACTIONS (7)
  - Product quality issue [Unknown]
  - Feeling abnormal [Recovered/Resolved]
  - Headache [Recovered/Resolved]
  - Head discomfort [Recovering/Resolving]
  - Hypersensitivity [Recovered/Resolved]
  - Limb discomfort [Recovered/Resolved]
  - Mydriasis [Recovered/Resolved]
